FAERS Safety Report 23047577 (Version 1)
Quarter: 2023Q4

REPORT INFORMATION
  Report Type: Report from Study
  Country: US (occurrence: None)
  Receive Date: 20231010
  Receipt Date: 20231010
  Transmission Date: 20240110
  Serious: Yes (Death)
  Sender: FDA-Public Use
  Company Number: 2023A227465

PATIENT
  Age: 33188 Day
  Sex: Female
  Weight: 63.5 kg

DRUGS (17)
  1. CALQUENCE [Suspect]
     Active Substance: ACALABRUTINIB
     Indication: Chronic lymphocytic leukaemia
     Route: 048
  2. IMBRUVICA [Concomitant]
     Active Substance: IBRUTINIB
  3. ESCITALOPRAM [Concomitant]
     Active Substance: ESCITALOPRAM OXALATE
  4. LORAZEPAM [Concomitant]
     Active Substance: LORAZEPAM
  5. GABAPENTIN [Concomitant]
     Active Substance: GABAPENTIN
  6. CARVEDILOL [Concomitant]
     Active Substance: CARVEDILOL
  7. CETIRIZINE [Concomitant]
     Active Substance: CETIRIZINE HYDROCHLORIDE
  8. FAMOTIDINE [Concomitant]
     Active Substance: FAMOTIDINE
  9. PLAVIX [Concomitant]
     Active Substance: CLOPIDOGREL BISULFATE
  10. ALBUTEROL SULFATE [Concomitant]
     Active Substance: ALBUTEROL SULFATE
  11. SEROQUEL XR [Concomitant]
     Active Substance: QUETIAPINE FUMARATE
  12. FUROSEMIDE [Concomitant]
     Active Substance: FUROSEMIDE
  13. TYLENOL [Concomitant]
     Active Substance: ACETAMINOPHEN
  14. SIMVASTATIN [Concomitant]
     Active Substance: SIMVASTATIN
  15. SENNA [Concomitant]
     Active Substance: SENNA LEAF\SENNOSIDES\SENNOSIDES A AND B
  16. LATANOPROST [Concomitant]
     Active Substance: LATANOPROST
  17. LISINOPRIL [Concomitant]
     Active Substance: LISINOPRIL

REACTIONS (1)
  - Death [Fatal]

NARRATIVE: CASE EVENT DATE: 20231004
